FAERS Safety Report 13064027 (Version 2)
Quarter: 2017Q1

REPORT INFORMATION
  Report Type: Spontaneous
  Country: US (occurrence: US)
  Receive Date: 20161227
  Receipt Date: 20170111
  Transmission Date: 20170428
  Serious: Yes (Other)
  Sender: FDA-Public Use
  Company Number: US-PFIZER INC-2016590670

PATIENT
  Age: 61 Year
  Sex: Female

DRUGS (8)
  1. SYNTHROID [Concomitant]
     Active Substance: LEVOTHYROXINE SODIUM
     Dosage: 112 UG, UNK, (1 MON-SAT, 50 SUNDAY)
  2. FUROSEMIDE. [Concomitant]
     Active Substance: FUROSEMIDE
     Dosage: 20 MG, UNK
  3. PLAQUENIL [Concomitant]
     Active Substance: HYDROXYCHLOROQUINE SULFATE
     Dosage: 200 MG, 2X/DAY,
  4. CALCIUM [Concomitant]
     Active Substance: CALCIUM
     Dosage: 600 MG, 2X/DAY
  5. CITALOPRAM [Concomitant]
     Active Substance: CITALOPRAM HYDROBROMIDE
     Dosage: 40 MG, UNK
  6. PEPCID [Concomitant]
     Active Substance: FAMOTIDINE
  7. XELJANZ [Suspect]
     Active Substance: TOFACITINIB CITRATE
     Indication: RHEUMATOID ARTHRITIS
     Dosage: 10 MG, 2X/DAY
     Dates: end: 2016
  8. DIOVAN [Concomitant]
     Active Substance: VALSARTAN
     Dosage: 20 MG, DAILY (1/2 DAILY)

REACTIONS (3)
  - Localised infection [Recovered/Resolved]
  - Prescribed overdose [Unknown]
  - Pneumonia [Recovered/Resolved]

NARRATIVE: CASE EVENT DATE: 2016
